FAERS Safety Report 8902695 (Version 1)
Quarter: 2012Q4

REPORT INFORMATION
  Report Type: 
  Country: US (occurrence: US)
  Receive Date: 20121112
  Receipt Date: 20121112
  Transmission Date: 20130627
  Serious: Yes (Other)
  Sender: FDA-Public Use
  Company Number: US-BAYER-2012-117307

PATIENT
  Age: 88 Year
  Sex: Male
  Weight: 71 kg

DRUGS (5)
  1. BAYER ASPIRIN REGIMEN ADULT LOW STRENGTH [Suspect]
     Indication: PAIN IN ARM
     Dosage: 1 DF, QD
     Route: 048
  2. CORGARD [Concomitant]
  3. NORVASC [Concomitant]
  4. LIPITOR [Concomitant]
  5. DIGOXIN [Concomitant]

REACTIONS (1)
  - Myocardial infarction [None]
